FAERS Safety Report 7820516-5 (Version None)
Quarter: 2011Q4

REPORT INFORMATION
  Report Type: 
  Country: None (occurrence: None)
  Receive Date: 20111018
  Receipt Date: 20111011
  Transmission Date: 20120403
  Serious: Yes (Other)
  Sender: FDA-Public Use
  Company Number: GB-UCBSA-042009

PATIENT
  Age: 30 Year
  Sex: Male

DRUGS (5)
  1. CLOZARIL [Suspect]
     Indication: SCHIZOPHRENIA
     Dosage: 400 MG PER DAY
     Route: 048
     Dates: start: 20040428, end: 20110101
  2. CLOZARIL [Suspect]
     Route: 048
     Dates: start: 20110101
  3. VALPROATE SODIUM [Suspect]
     Indication: EPILEPSY
     Dosage: 2000 MG
     Route: 048
  4. LANSOPRAZOLE [Concomitant]
     Indication: DYSPEPSIA
     Dosage: 30 MG
     Route: 048
  5. LEVETIRACETAM [Suspect]
     Indication: EPILEPSY
     Dosage: 1000 MG
     Route: 048

REACTIONS (4)
  - CONSTIPATION [None]
  - NEUTROPHIL COUNT DECREASED [None]
  - WHITE BLOOD CELL COUNT DECREASED [None]
  - ABDOMINAL PAIN UPPER [None]
